FAERS Safety Report 6826220-4 (Version None)
Quarter: 2010Q3

REPORT INFORMATION
  Report Type: 
  Country: None (occurrence: None)
  Receive Date: 20100709
  Receipt Date: 20100624
  Transmission Date: 20110219
  Serious: Yes (Hospitalization, Other)
  Sender: FDA-Public Use
  Company Number: PHHY2010DE36953

PATIENT
  Sex: Male

DRUGS (1)
  1. GLEEVEC [Suspect]
     Dosage: 800 MG/DAY
     Route: 048
     Dates: end: 20100601

REACTIONS (5)
  - CHEST PAIN [None]
  - IMMUNOSUPPRESSION [None]
  - INFLAMMATORY MARKER INCREASED [None]
  - PERICARDIAL EFFUSION [None]
  - VIRAL INFECTION [None]
